FAERS Safety Report 18657611 (Version 2)
Quarter: 2022Q1

REPORT INFORMATION
  Report Type: Report from Study
  Country: BR (occurrence: BR)
  Receive Date: 20201223
  Receipt Date: 20220309
  Transmission Date: 20220423
  Serious: Yes (Hospitalization, Other)
  Sender: FDA-Public Use
  Company Number: BR-002147023-PHHY2019BR226182

PATIENT
  Age: 38 Year
  Sex: Female
  Weight: 63 kg

DRUGS (12)
  1. INTERFERON BETA-1B [Suspect]
     Active Substance: INTERFERON BETA-1B
     Indication: Multiple sclerosis
     Dosage: UNK
     Route: 065
     Dates: start: 201805
  2. GILENYA [Suspect]
     Active Substance: FINGOLIMOD HYDROCHLORIDE
     Indication: Multiple sclerosis
     Dosage: 0.5 MG, QD
     Route: 048
     Dates: start: 20190916
  3. GILENYA [Suspect]
     Active Substance: FINGOLIMOD HYDROCHLORIDE
     Indication: Multiple sclerosis
     Dosage: UNK
     Route: 048
  4. GILENYA [Suspect]
     Active Substance: FINGOLIMOD HYDROCHLORIDE
     Indication: Multiple sclerosis
     Dosage: UNK
     Route: 048
  5. GILENYA [Suspect]
     Active Substance: FINGOLIMOD HYDROCHLORIDE
     Indication: Multiple sclerosis
     Dosage: 0.5  QD
     Route: 048
     Dates: start: 20190916
  6. GILENYA [Suspect]
     Active Substance: FINGOLIMOD HYDROCHLORIDE
     Indication: Multiple sclerosis
     Dosage: 0.5 MG, QD
     Route: 048
     Dates: start: 20190916
  7. GILENYA [Suspect]
     Active Substance: FINGOLIMOD HYDROCHLORIDE
     Indication: Multiple sclerosis
     Dosage: UNK
     Route: 065
     Dates: start: 20190916
  8. RITALIN [Suspect]
     Active Substance: METHYLPHENIDATE HYDROCHLORIDE
     Indication: Product used for unknown indication
     Dosage: UNK
     Route: 065
  9. ETODOLAC [Concomitant]
     Active Substance: ETODOLAC
     Dosage: UNK
     Dates: start: 20200920
  10. DIENOGEST [Concomitant]
     Active Substance: DIENOGEST
     Dosage: UNK
  11. COLLAGEN [Concomitant]
     Active Substance: COLLAGEN
     Dosage: UNK
  12. FISH OIL [Concomitant]
     Active Substance: FISH OIL

REACTIONS (54)
  - Bone pain [Recovering/Resolving]
  - Gait deviation [Recovering/Resolving]
  - Muscular weakness [Recovering/Resolving]
  - Somnolence [None]
  - Skin texture abnormal [None]
  - Pruritus [None]
  - Multiple sclerosis [None]
  - Hemiparesis [None]
  - Bone swelling [None]
  - Musculoskeletal disorder [None]
  - Hypoaesthesia [None]
  - Peripheral swelling [None]
  - Tendonitis [Recovering/Resolving]
  - Joint swelling [Recovering/Resolving]
  - Spinal cord injury [None]
  - Tenosynovitis [None]
  - Multiple sclerosis relapse [None]
  - Multiple sclerosis relapse [None]
  - Central nervous system lesion [None]
  - Dizziness [None]
  - Nausea [None]
  - Limb discomfort [None]
  - Acne [None]
  - Constipation [None]
  - Skin discolouration [None]
  - Chest pain [None]
  - Headache [None]
  - Sinusitis [None]
  - Pain [None]
  - Arthralgia [Not Recovered/Not Resolved]
  - Memory impairment [None]
  - Fear [None]
  - Nervousness [None]
  - Tremor [None]
  - Limb mass [None]
  - Abdominal mass [None]
  - Mass [None]
  - Agitation [None]
  - Hemiparaesthesia [None]
  - Paraesthesia [None]
  - Pain in extremity [None]
  - Ageusia [None]
  - Head discomfort [None]
  - Visual impairment [None]
  - Hypoacusis [None]
  - Speech disorder [None]
  - Insomnia [None]
  - Pain in extremity [None]
  - Pain in extremity [None]
  - Heart rate increased [None]
  - Arthropathy [None]
  - Haematoma [None]
  - Hypersensitivity [None]
  - Headache [None]

NARRATIVE: CASE EVENT DATE: 20190916
